FAERS Safety Report 9314097 (Version 2)
Quarter: 2013Q3

REPORT INFORMATION
  Report Type: Report from Study
  Country: TW (occurrence: TW)
  Receive Date: 20130529
  Receipt Date: 20130702
  Transmission Date: 20140515
  Serious: Yes (Other)
  Sender: FDA-Public Use
  Company Number: TW-GENZYME-CERZ-1003031

PATIENT
  Age: 54 Year
  Sex: Female
  Weight: 58 kg

DRUGS (13)
  1. CEREZYME [Suspect]
     Indication: GAUCHER^S DISEASE
     Dosage: 60 U/KG, Q2W
     Route: 042
     Dates: start: 20030528
  2. NEOSTIGMINE METHYLSULFATE 01% OPHTHALMIC SOLUTION [Concomitant]
     Indication: PRODUCT USED FOR UNKNOWN INDICATION
     Dosage: 1 DF, BID
     Route: 047
     Dates: start: 20060510
  3. VOTAN [Concomitant]
     Indication: PRODUCT USED FOR UNKNOWN INDICATION
     Dosage: 1 DF, BID
     Route: 048
     Dates: start: 20061020
  4. VOTAN [Concomitant]
     Dosage: 1 DF, QD
     Route: 048
     Dates: start: 20071003, end: 20071003
  5. VOTAN [Concomitant]
     Dosage: 1 DF, BID
     Route: 048
     Dates: start: 20080116, end: 20080116
  6. VOTAN [Concomitant]
     Dosage: 1 DF, BID
     Route: 048
     Dates: start: 20090923
  7. EBUTOL [Concomitant]
     Indication: PRODUCT USED FOR UNKNOWN INDICATION
     Dosage: 2 DF, QD
     Route: 048
     Dates: start: 20120918, end: 20121030
  8. TINTEN [Concomitant]
     Indication: PRODUCT USED FOR UNKNOWN INDICATION
     Dosage: 1 DF, PRN
     Route: 048
     Dates: start: 20091021, end: 20120917
  9. PYRAZINAMIDE [Concomitant]
     Indication: PRODUCT USED FOR UNKNOWN INDICATION
     Dosage: 2 DF, QD
     Route: 048
     Dates: start: 20120918, end: 20121030
  10. RIFINAH [Concomitant]
     Indication: PRODUCT USED FOR UNKNOWN INDICATION
     Dosage: 2 DAY, QD
     Route: 048
     Dates: start: 20120918
  11. EUCLIDAN [Concomitant]
     Indication: PRODUCT USED FOR UNKNOWN INDICATION
     Dosage: 1 DF, BID
     Route: 048
     Dates: start: 20060510, end: 20110427
  12. JUVELA NICOTINATE [Concomitant]
     Indication: PRODUCT USED FOR UNKNOWN INDICATION
     Dosage: 1 DF, BID
     Route: 048
     Dates: start: 20060510, end: 20110427
  13. SOLANIX [Concomitant]
     Indication: PRODUCT USED FOR UNKNOWN INDICATION
     Dosage: 1 DF, QD
     Route: 048
     Dates: start: 20100428, end: 20110302

REACTIONS (3)
  - White matter lesion [Not Recovered/Not Resolved]
  - Sinusitis [Unknown]
  - Parkinsonism [Not Recovered/Not Resolved]
